FAERS Safety Report 5112904-5 (Version None)
Quarter: 2006Q3

REPORT INFORMATION
  Report Type: 
  Country: None (occurrence: None)
  Receive Date: 20060921
  Receipt Date: 20060921
  Transmission Date: 20061208
  Serious: Yes (Hospitalization)
  Sender: FDA-Public Use
  Company Number: None

PATIENT
  Age: 55 Year
  Sex: Female
  Weight: 60 kg

DRUGS (2)
  1. METHOTREXATE [Suspect]
  2. CYTARABINE [Suspect]

REACTIONS (5)
  - CULTURE URINE POSITIVE [None]
  - INFECTION [None]
  - NEUTROPENIA [None]
  - PYREXIA [None]
  - RASH [None]
